FAERS Safety Report 4684457-7 (Version None)
Quarter: 2005Q2

REPORT INFORMATION
  Report Type: 
  Country: None (occurrence: None)
  Receive Date: 20050607
  Receipt Date: 20050601
  Transmission Date: 20051028
  Serious: Yes (Other)
  Sender: FDA-Public Use
  Company Number: PHNR2005AU00929

PATIENT
  Age: 32 Year
  Sex: Female
  Weight: 60 kg

DRUGS (9)
  1. SANDIMMUNE [Suspect]
     Indication: COLITIS ULCERATIVE
     Dosage: 100 MG/DAY
  2. SANDIMMUNE [Suspect]
     Dosage: 75 MG/DAY
  3. NEORAL [Suspect]
     Indication: COLITIS ULCERATIVE
     Dosage: 175 MG, BID
     Route: 048
  4. NEORAL [Suspect]
     Dosage: 150 MG, BID
  5. MESASAL [Concomitant]
     Dosage: 1 G, TID
  6. PREDNISONE TAB [Concomitant]
  7. HYDROCORTISONE [Concomitant]
     Route: 042
  8. MERCAPTOPURINE [Suspect]
  9. ST. JOHN'S WORT [Suspect]

REACTIONS (5)
  - COORDINATION ABNORMAL [None]
  - DRUG LEVEL DECREASED [None]
  - HEMIPARESIS [None]
  - MIGRAINE [None]
  - NUCLEAR MAGNETIC RESONANCE IMAGING ABNORMAL [None]
